FAERS Safety Report 18664191 (Version 4)
Quarter: 2021Q3

REPORT INFORMATION
  Report Type: Spontaneous
  Country: GB (occurrence: GB)
  Receive Date: 20201225
  Receipt Date: 20210818
  Transmission Date: 20211014
  Serious: Yes (Other)
  Sender: FDA-Public Use
  Company Number: GB-BIOVITRUM-2020GB7861

PATIENT
  Age: 62 Year
  Sex: Male

DRUGS (9)
  1. COLCHCINE [Concomitant]
     Dosage: AS NEEDED.
     Dates: start: 199703
  2. SERTRALINE [Concomitant]
     Active Substance: SERTRALINE HYDROCHLORIDE
  3. ORFADIN [Suspect]
     Active Substance: NITISINONE
     Indication: ALKAPTONURIA
     Dates: start: 2018
  4. ACCRETE D3 [Concomitant]
     Active Substance: CALCIUM CARBONATE\CHOLECALCIFEROL
  5. NIFEDIPINE. [Concomitant]
     Active Substance: NIFEDIPINE
  6. TIGER BALM [Concomitant]
     Active Substance: CAMPHOR (SYNTHETIC)\CAPSICUM OLEORESIN\MENTHOL\METHYL SALICYLATE
  7. LISINOPRIL. [Concomitant]
     Active Substance: LISINOPRIL
     Dates: start: 199901
  8. DICLOFENAC [Concomitant]
     Active Substance: DICLOFENAC
  9. ADALAT CC [Concomitant]
     Active Substance: NIFEDIPINE
     Dates: start: 199901

REACTIONS (5)
  - Amino acid level increased [Unknown]
  - Lenticular opacities [Unknown]
  - Cataract [Unknown]
  - Corneal neovascularisation [Unknown]
  - Scleral pigmentation [Unknown]

NARRATIVE: CASE EVENT DATE: 2018
